FAERS Safety Report 8215405-0 (Version None)
Quarter: 2012Q1

REPORT INFORMATION
  Report Type: 
  Country: None (occurrence: None)
  Receive Date: 20120316
  Receipt Date: 20120305
  Transmission Date: 20120608
  Serious: Yes (Other)
  Sender: FDA-Public Use
  Company Number: PL-AMGEN-POLSP2012015758

PATIENT
  Age: 46 Year
  Sex: Female
  Weight: 97 kg

DRUGS (1)
  1. ENBREL [Suspect]
     Indication: RHEUMATOID ARTHRITIS
     Dosage: 50 MG, WEEKLY, ONCE WEEKLY
     Route: 058
     Dates: start: 20111128, end: 20120215

REACTIONS (4)
  - SKIN EXFOLIATION [None]
  - DERMATITIS ALLERGIC [None]
  - INJECTION SITE EXTRAVASATION [None]
  - ERYTHEMA [None]
